FAERS Safety Report 17109345 (Version 1)
Quarter: 2019Q4

REPORT INFORMATION
  Report Type: Spontaneous
  Country: GB (occurrence: GB)
  Receive Date: 20191204
  Receipt Date: 20191204
  Transmission Date: 20200122
  Serious: Yes (Other)
  Sender: FDA-Public Use
  Company Number: GB-LUPIN PHARMACEUTICALS INC.-2019-07974

PATIENT
  Age: 76 Year
  Sex: Male

DRUGS (1)
  1. AZACITIDINE INJECTION [Suspect]
     Active Substance: AZACITIDINE
     Indication: CHRONIC MYELOMONOCYTIC LEUKAEMIA
     Dosage: 75 MILLIGRAM/SQ. METER, FOR 7 DAYS EVERY 28 DAYS
     Route: 058

REACTIONS (3)
  - Sleep disorder [Recovering/Resolving]
  - Pruritus [Recovered/Resolved]
  - Disturbance in social behaviour [Unknown]
